FAERS Safety Report 16161653 (Version 1)
Quarter: 2019Q2

REPORT INFORMATION
  Report Type: Spontaneous
  Country: DE (occurrence: DE)
  Receive Date: 20190405
  Receipt Date: 20190405
  Transmission Date: 20190711
  Serious: Yes (Other)
  Sender: FDA-Public Use
  Company Number: DE-ROCHE-2292719

PATIENT
  Age: 80 Year

DRUGS (19)
  1. BICANORM [Concomitant]
     Active Substance: SODIUM BICARBONATE
     Dosage: 0-0-1 ON DIALYSIS-FREE DAYS
     Route: 065
  2. TILIDIN [Concomitant]
     Active Substance: NALOXONE HYDROCHLORIDE\TILIDINE HYDROCHLORIDE
     Dosage: 1-0-1
     Route: 065
  3. SALBUTAMOL [Concomitant]
     Active Substance: ALBUTEROL
     Dosage: AS REQUIRED
     Route: 065
  4. NOVAMINSULFON [Concomitant]
     Active Substance: METAMIZOLE
     Route: 065
  5. PANTOPRAZOL [Concomitant]
     Active Substance: PANTOPRAZOLE SODIUM
     Dosage: 1-0-0
     Route: 065
  6. DARBEPOETIN ALFA [Concomitant]
     Active Substance: DARBEPOETIN ALFA
     Dosage: ALWAYS ON MONDAY
     Route: 065
  7. METOPROLOL. [Concomitant]
     Active Substance: METOPROLOL
     Dosage: 50 MG IN THE MORNING, 100 MG IN THE EVENING
     Route: 065
  8. MARCUMAR [Concomitant]
     Active Substance: PHENPROCOUMON
     Dosage: AS REQUIRED
     Route: 065
  9. FERRLECIT [Concomitant]
     Active Substance: SODIUM FERRIC GLUCONATE COMPLEX
     Dosage: ALWAYS ON MONDAY
     Route: 042
  10. CANDESARTAN. [Concomitant]
     Active Substance: CANDESARTAN
     Dosage: 1-0-1
     Route: 065
  11. GABAPENTIN. [Concomitant]
     Active Substance: GABAPENTIN
     Dosage: 0-2-1 ON DAYS OF DIALYSIS
     Route: 065
  12. LOPERAMID [Concomitant]
     Active Substance: LOPERAMIDE
     Route: 065
  13. TECENTRIQ [Suspect]
     Active Substance: ATEZOLIZUMAB
     Indication: TRANSITIONAL CELL CARCINOMA
     Route: 065
     Dates: start: 201804
  14. NITROLINGUAL [Concomitant]
     Active Substance: NITROGLYCERIN
     Dosage: IF BLOOD PRESSURE }180 MMHG
     Route: 065
  15. LERCANIDIPIN ACTAVIS [Concomitant]
     Active Substance: LERCANIDIPINE
     Dosage: 0-1-0
     Route: 065
  16. SPIRIVA RESPIMAT [Concomitant]
     Active Substance: TIOTROPIUM BROMIDE
     Dosage: 1-0-1
     Route: 065
  17. GABAPENTIN. [Concomitant]
     Active Substance: GABAPENTIN
     Dosage: 1-1-1
     Route: 065
  18. ADALAT [Concomitant]
     Active Substance: NIFEDIPINE
     Dosage: AS REQUIRED
     Route: 065
  19. DEKRISTOL [Concomitant]
     Active Substance: CHOLECALCIFEROL
     Dosage: AT FIRST DIALYSIS
     Route: 065

REACTIONS (4)
  - Brain stem ischaemia [Unknown]
  - Pleural effusion [Unknown]
  - Ascites [Unknown]
  - Pneumonia bacterial [Recovering/Resolving]

NARRATIVE: CASE EVENT DATE: 20180608
